FAERS Safety Report 15504879 (Version 4)
Quarter: 2020Q3

REPORT INFORMATION
  Report Type: Spontaneous
  Country: US (occurrence: US)
  Receive Date: 20181016
  Receipt Date: 20200918
  Transmission Date: 20201102
  Serious: Yes (Other)
  Sender: FDA-Public Use
  Company Number: US-SA-2018SA284674

PATIENT

DRUGS (2)
  1. AUBAGIO [Suspect]
     Active Substance: TERIFLUNOMIDE
     Indication: MULTIPLE SCLEROSIS
     Dosage: 14 MG, QD
     Route: 048
     Dates: start: 2018
  2. AUBAGIO [Suspect]
     Active Substance: TERIFLUNOMIDE
     Dosage: 14 MG, QD
     Route: 048
     Dates: start: 20200309

REACTIONS (6)
  - COVID-19 [Unknown]
  - Muscle spasms [Unknown]
  - SARS-CoV-2 test positive [Unknown]
  - Fall [Unknown]
  - Therapeutic response decreased [Unknown]
  - Pain [Unknown]

NARRATIVE: CASE EVENT DATE: 20200508
